FAERS Safety Report 7012862-2 (Version None)
Quarter: 2010Q3

REPORT INFORMATION
  Report Type: 
  Country: None (occurrence: None)
  Receive Date: 20100924
  Receipt Date: 20100915
  Transmission Date: 20110219
  Serious: Yes (Hospitalization, Other)
  Sender: FDA-Public Use
  Company Number: US-US-EMD SERONO, INC.-230695J09USA

PATIENT
  Sex: Female

DRUGS (7)
  1. REBIF [Suspect]
     Indication: MULTIPLE SCLEROSIS
     Route: 058
     Dates: start: 20080101
  2. TYLENOL [Concomitant]
     Indication: PREMEDICATION
     Route: 065
  3. INSULIN [Concomitant]
     Indication: DIABETES MELLITUS
  4. BACLOFEN [Concomitant]
     Indication: MULTIPLE SCLEROSIS
  5. NEURONTIN [Concomitant]
     Indication: MULTIPLE SCLEROSIS
  6. GLYBURIDE [Concomitant]
     Indication: DIABETES MELLITUS
  7. POTASSIUM [Concomitant]
     Indication: BLOOD POTASSIUM DECREASED

REACTIONS (5)
  - BLOOD GLUCOSE INCREASED [None]
  - BLOOD PRESSURE FLUCTUATION [None]
  - GLUCOSE URINE [None]
  - INJECTION SITE HAEMATOMA [None]
  - PROTEIN URINE [None]
